FAERS Safety Report 8994610 (Version 1)
Quarter: 2012Q4

REPORT INFORMATION
  Report Type: Spontaneous
  Country: US (occurrence: None)
  Receive Date: 20121228
  Receipt Date: 20121228
  Transmission Date: 20130627
  Serious: Yes (Other)
  Sender: FDA-Public Use
  Company Number: None

PATIENT
  Age: 85 Year
  Sex: Female
  Weight: 55.79 kg

DRUGS (1)
  1. CARBIDOPA/LEVODOPA 25-100MG SUN PHARMACEUTICAL [Suspect]
     Indication: PARKINSON^S DISEASE
     Dosage: 1.5 tabs  4 times daily po
     Route: 048
     Dates: start: 20121202, end: 20121226

REACTIONS (3)
  - Parkinson^s disease [None]
  - Product substitution issue [None]
  - General physical health deterioration [None]
